FAERS Safety Report 5934922-7 (Version None)
Quarter: 2008Q4

REPORT INFORMATION
  Report Type: 
  Country: None (occurrence: None)
  Receive Date: 20081027
  Receipt Date: 20081020
  Transmission Date: 20090506
  Serious: Yes (Death, Other)
  Sender: FDA-Public Use
  Company Number: 2008JP005034

PATIENT
  Age: 46 Year
  Sex: Male

DRUGS (4)
  1. TACROLIMUS [Suspect]
     Indication: LIVER TRANSPLANT
  2. MYCOPHENOLATE MOFETIL [Suspect]
     Indication: LIVER TRANSPLANT
  3. LUMIVUDINE (LAMIVUDINE) FORMULATION [Concomitant]
  4. HEPATITIS B IMMUNOGLOBULIN (IMMUNOGLOBULIN ANTIHEPATITIS B) [Concomitant]

REACTIONS (4)
  - DIFFUSE LARGE B-CELL LYMPHOMA [None]
  - HEPATITIS B [None]
  - LYMPHADENOPATHY [None]
  - SEPSIS [None]
